FAERS Safety Report 15982594 (Version 1)
Quarter: 2019Q1

REPORT INFORMATION
  Report Type: Spontaneous
  Country: US (occurrence: US)
  Receive Date: 20190219
  Receipt Date: 20190219
  Transmission Date: 20190418
  Serious: No
  Sender: FDA-Public Use
  Company Number: US-ENDO PHARMACEUTICALS INC-2018-039657

PATIENT
  Age: 68 Year
  Sex: Female
  Weight: 55.33 kg

DRUGS (1)
  1. XIAFLEX [Suspect]
     Active Substance: COLLAGENASE CLOSTRIDIUM HISTOLYTICUM
     Indication: DUPUYTREN^S CONTRACTURE
     Dosage: FIRST CYCLE, FIRST INJECTION
     Route: 026
     Dates: start: 20180514

REACTIONS (9)
  - Peripheral swelling [Recovering/Resolving]
  - Skin laceration [Unknown]
  - Axillary pain [Unknown]
  - Pallor [Unknown]
  - Contusion [Recovering/Resolving]
  - Dizziness [Unknown]
  - Internal haemorrhage [Unknown]
  - Injection site pain [Unknown]
  - Swelling [Recovering/Resolving]

NARRATIVE: CASE EVENT DATE: 201805
